FAERS Safety Report 22212617 (Version 5)
Quarter: 2023Q4

REPORT INFORMATION
  Report Type: Spontaneous
  Country: US (occurrence: US)
  Receive Date: 20230414
  Receipt Date: 20231211
  Transmission Date: 20240110
  Serious: Yes (Other)
  Sender: FDA-Public Use
  Company Number: US-PFIZER INC-PV202300067034

PATIENT
  Age: 24 Year
  Sex: Female

DRUGS (2)
  1. XELJANZ XR [Suspect]
     Active Substance: TOFACITINIB CITRATE
     Indication: Dermatitis atopic
     Dosage: 11 MG PO QD
     Route: 048
  2. XELJANZ XR [Suspect]
     Active Substance: TOFACITINIB CITRATE
     Indication: Acne
     Dosage: 11 MG

REACTIONS (4)
  - Colitis [Unknown]
  - Off label use [Unknown]
  - Fatigue [Unknown]
  - Loss of personal independence in daily activities [Unknown]
